FAERS Safety Report 8772972 (Version 4)
Quarter: 2012Q4

REPORT INFORMATION
  Report Type: 
  Country: FR (occurrence: FR)
  Receive Date: 20120907
  Receipt Date: 20121011
  Transmission Date: 20130627
  Serious: Yes (Death, Other)
  Sender: FDA-Public Use
  Company Number: FR-ABBOTT-12P-056-0975836-00

PATIENT
  Age: 65 None
  Sex: Male

DRUGS (2)
  1. HUMIRA [Suspect]
     Indication: PSORIASIS
     Dates: start: 201102, end: 201103
  2. HUMIRA [Suspect]
     Route: 058
     Dates: start: 201109, end: 20120417

REACTIONS (12)
  - Chest pain [Fatal]
  - Dyspnoea exertional [Fatal]
  - Aortic dissection [Fatal]
  - Oesophageal pain [Fatal]
  - Face oedema [Fatal]
  - Loss of consciousness [Fatal]
  - Rectal haemorrhage [Recovered/Resolved]
  - Intervertebral disc disorder [Not Recovered/Not Resolved]
  - Chest pain [Fatal]
  - Myocardial infarction [Fatal]
  - Osteoarthritis [Unknown]
  - Pulmonary oedema [Unknown]
